FAERS Safety Report 4689709-2 (Version None)
Quarter: 2005Q2

REPORT INFORMATION
  Report Type: 
  Country: None (occurrence: None)
  Receive Date: 20050608
  Receipt Date: 20041006
  Transmission Date: 20051028
  Serious: Yes (Other)
  Sender: FDA-Public Use
  Company Number: 382518

PATIENT
  Age: 35 Year
  Sex: Male
  Weight: 113.4 kg

DRUGS (1)
  1. ACCUTANE [Suspect]
     Indication: HYPERKERATOSIS PALMARIS AND PLANTARIS
     Dosage: 40 MG 2 PER DAY ORAL
     Route: 048
     Dates: start: 20040420, end: 20040830

REACTIONS (1)
  - ARTHRALGIA [None]
